FAERS Safety Report 6532264-2 (Version None)
Quarter: 2010Q1

REPORT INFORMATION
  Report Type: 
  Country: None (occurrence: None)
  Receive Date: 20100108
  Receipt Date: 20100104
  Transmission Date: 20100710
  Serious: Yes (Death, Other)
  Sender: FDA-Public Use
  Company Number: PHHY2010BR00508

PATIENT

DRUGS (4)
  1. FORASEQ [Suspect]
     Indication: EMPHYSEMA
     Dosage: 12/400 MCG, 2 INHALATIONS DAILY
  2. SPIRIVA [Suspect]
     Indication: EMPHYSEMA
  3. AMINOFILIN [Concomitant]
     Indication: EMPHYSEMA
  4. AEROFLUX [Concomitant]
     Indication: EMPHYSEMA

REACTIONS (5)
  - AGITATION [None]
  - BLOOD PRESSURE FLUCTUATION [None]
  - DEATH [None]
  - DEMENTIA ALZHEIMER'S TYPE [None]
  - IRRITABILITY [None]
